FAERS Safety Report 7553469-8 (Version None)
Quarter: 2011Q2

REPORT INFORMATION
  Report Type: 
  Country: None (occurrence: None)
  Receive Date: 20110617
  Receipt Date: 20110203
  Transmission Date: 20111010
  Serious: Yes (Hospitalization, Other)
  Sender: FDA-Public Use
  Company Number: US-BAYER-201040711NA

PATIENT
  Age: 25 Year
  Sex: Female
  Weight: 131.52 kg

DRUGS (25)
  1. ANTIBIOTICS [Concomitant]
  2. FLEXERIL [Concomitant]
  3. NEXIUM [Concomitant]
  4. YASMIN [Suspect]
     Indication: ACNE
  5. YAZ [Suspect]
     Indication: ACNE
     Dosage: UNK
     Dates: start: 20080201, end: 20080923
  6. TOPAMAX [Concomitant]
     Indication: MIGRAINE
     Dosage: UNK
     Dates: start: 20070101
  7. CYCLOBENZAPRINE [Concomitant]
  8. HPV VACCINE GARDASIL [Concomitant]
     Dosage: UNK
     Dates: start: 20070925
  9. LORTAB [Concomitant]
     Indication: INTERVERTEBRAL DISC PROTRUSION
  10. SEROQUEL [Concomitant]
     Indication: BIPOLAR DISORDER
  11. LEVEMIR [Concomitant]
  12. VYTORIN [Concomitant]
  13. EPIPEN [Concomitant]
  14. LORTAB [Concomitant]
     Indication: BACK INJURY
  15. BYETTA [Concomitant]
  16. YAZ [Suspect]
     Indication: CONTRACEPTION
  17. LISINOPRIL [Concomitant]
     Dosage: UNK
     Dates: start: 20060101
  18. HYDROCODONE [Concomitant]
     Indication: PAIN
     Dosage: UNK
     Dates: start: 20040101
  19. HPV VACCINE GARDASIL [Concomitant]
     Dosage: UNK
     Dates: start: 20070425
  20. YAZ [Suspect]
     Indication: PREMENSTRUAL SYNDROME
  21. IBUPROFEN [Concomitant]
  22. INSULIN [Concomitant]
     Indication: DIABETES MELLITUS
     Dosage: UNK
     Dates: start: 20060101
  23. HUMALOG [Concomitant]
  24. HPV VACCINE GARDASIL [Concomitant]
     Dosage: UNK
     Dates: start: 20070711
  25. ACTOS [Concomitant]

REACTIONS (4)
  - CHOLECYSTITIS CHRONIC [None]
  - GALLBLADDER DISORDER [None]
  - INJURY [None]
  - CHOLESTEROSIS [None]
